FAERS Safety Report 15459499 (Version 1)
Quarter: 2018Q3

REPORT INFORMATION
  Report Type: Spontaneous
  Country: US (occurrence: US)
  Receive Date: 20180928
  Receipt Date: 20180928
  Transmission Date: 20181010
  Serious: No
  Sender: FDA-Public Use
  Company Number: None

PATIENT
  Age: 60 Year
  Sex: Female

DRUGS (1)
  1. AMPYRA [Suspect]
     Active Substance: DALFAMPRIDINE
     Indication: MULTIPLE SCLEROSIS
     Route: 048
     Dates: start: 20180807

REACTIONS (4)
  - Blood creatinine abnormal [None]
  - Blood potassium abnormal [None]
  - Blood glucose abnormal [None]
  - Blood urea abnormal [None]

NARRATIVE: CASE EVENT DATE: 20180816
